FAERS Safety Report 7395082-1 (Version None)
Quarter: 2011Q1

REPORT INFORMATION
  Report Type: 
  Country: None (occurrence: None)
  Receive Date: 20110325
  Receipt Date: 20110317
  Transmission Date: 20110831
  Serious: Yes (Other)
  Sender: FDA-Public Use
  Company Number: 029415

PATIENT
  Age: 53 Year
  Sex: Male

DRUGS (2)
  1. XYZALL /01530201/ (XYZALL) [Suspect]
     Dosage: (5 MG QD, AT NIGHT ORAL)
     Route: 048
     Dates: start: 20110301, end: 20110316
  2. ANTI-ASTHMATICS [Concomitant]

REACTIONS (2)
  - PAPILLOEDEMA [None]
  - VISUAL IMPAIRMENT [None]
